FAERS Safety Report 7412634-0 (Version None)
Quarter: 2011Q2

REPORT INFORMATION
  Report Type: 
  Country: None (occurrence: None)
  Receive Date: 20110413
  Receipt Date: 20110408
  Transmission Date: 20111010
  Serious: Yes (Other)
  Sender: FDA-Public Use
  Company Number: US-PFIZER INC-2011078424

PATIENT
  Sex: Female
  Weight: 68.027 kg

DRUGS (4)
  1. AMITRIPTYLINE [Concomitant]
     Dosage: 50 MG, DAILY
  2. IBUPROFEN [Concomitant]
     Dosage: 600 MG, 3X/DAY
  3. LYRICA [Suspect]
     Indication: FIBROMYALGIA
     Dosage: 200 MG, 3X/DAY
     Route: 048
     Dates: start: 20070101, end: 20110101
  4. NORCO [Concomitant]
     Indication: NECK INJURY
     Dosage: UNK

REACTIONS (1)
  - BALANCE DISORDER [None]
